FAERS Safety Report 15963388 (Version 1)
Quarter: 2019Q1

REPORT INFORMATION
  Report Type: Spontaneous
  Country: BR (occurrence: BR)
  Receive Date: 20190214
  Receipt Date: 20190214
  Transmission Date: 20190417
  Serious: Yes (Hospitalization)
  Sender: FDA-Public Use
  Company Number: BR-PFIZER INC-2019034670

PATIENT
  Age: 35 Year
  Sex: Female

DRUGS (8)
  1. FRONTAL XR [Suspect]
     Active Substance: ALPRAZOLAM
     Indication: PANIC DISORDER
     Dosage: 1 TABLET OF 2 MG DAILY
     Dates: start: 201607, end: 2018
  2. FRONTAL XR [Suspect]
     Active Substance: ALPRAZOLAM
     Dosage: 1 TABLET OF 2 MG DAILY
     Dates: start: 201810, end: 20181129
  3. FRONTAL XR [Suspect]
     Active Substance: ALPRAZOLAM
     Dosage: 1 TABLET OF 2 MG DAILY
  4. RECONTER [Concomitant]
     Active Substance: ESCITALOPRAM OXALATE
     Dosage: 10 MG, 1X/DAY
     Dates: start: 201809
  5. FRONTAL XR [Suspect]
     Active Substance: ALPRAZOLAM
     Indication: DEPRESSION
     Dosage: 1 TABLET OF 1 MG DAILY
     Dates: start: 2018, end: 2018
  6. FRONTAL XR [Suspect]
     Active Substance: ALPRAZOLAM
     Indication: ANXIETY
     Dosage: 1 TABLET OF 0.5 MG DAILY
     Dates: start: 2018, end: 201805
  7. FRONTAL XR [Suspect]
     Active Substance: ALPRAZOLAM
     Dosage: 1 TABLET OF 2 MG ON ALTERNATE DAYS
     Dates: start: 20181130
  8. FRONTAL XR [Suspect]
     Active Substance: ALPRAZOLAM
     Dosage: 1 TABLET OF 2 MG DAILY
     Dates: start: 201805, end: 201808

REACTIONS (4)
  - Tremor [Recovered/Resolved]
  - Intentional product misuse [Recovered/Resolved]
  - Fear [Recovered/Resolved]
  - Irritability [Recovered/Resolved]

NARRATIVE: CASE EVENT DATE: 20181130
